FAERS Safety Report 7554165-3 (Version None)
Quarter: 2011Q2

REPORT INFORMATION
  Report Type: 
  Country: None (occurrence: None)
  Receive Date: 20110614
  Receipt Date: 20110614
  Transmission Date: 20111010
  Serious: Yes (Other)
  Sender: FDA-Public Use
  Company Number: None

PATIENT
  Sex: Male
  Weight: 85 kg

DRUGS (1)
  1. LAMOTRIGINE [Suspect]
     Indication: CONVULSION
     Dosage: 150MG BID
     Dates: start: 20100901, end: 20101001

REACTIONS (2)
  - FEELING ABNORMAL [None]
  - PRODUCT SUBSTITUTION ISSUE [None]
